FAERS Safety Report 8402976-4 (Version None)
Quarter: 2012Q2

REPORT INFORMATION
  Report Type: 
  Country: None (occurrence: None)
  Receive Date: 20120601
  Receipt Date: 20120525
  Transmission Date: 20120825
  Serious: Yes (Hospitalization, Other)
  Sender: FDA-Public Use
  Company Number: GB-TEVA-340115USA

PATIENT
  Age: 75 Year
  Sex: Female
  Weight: 40 kg

DRUGS (1)
  1. TREANDA [Suspect]
     Indication: NON-HODGKIN'S LYMPHOMA
     Route: 042
     Dates: start: 20120308

REACTIONS (4)
  - PANCYTOPENIA [None]
  - CONSTIPATION [None]
  - ABDOMINAL PAIN [None]
  - VOMITING [None]
